FAERS Safety Report 15170947 (Version 1)
Quarter: 2018Q3

REPORT INFORMATION
  Report Type: Spontaneous
  Country: US (occurrence: US)
  Receive Date: 20180720
  Receipt Date: 20180720
  Transmission Date: 20181010
  Serious: Yes (Other)
  Sender: FDA-Public Use
  Company Number: US-SA-2017SA266277

PATIENT
  Age: 51 Year
  Sex: Female
  Weight: 62.14 kg

DRUGS (6)
  1. TAXOTERE [Suspect]
     Active Substance: DOCETAXEL
     Indication: BREAST CANCER FEMALE
     Dosage: UNK UNK, Q3W
     Route: 051
     Dates: start: 20091231, end: 20091231
  2. NEOSAR [Concomitant]
     Active Substance: CYCLOPHOSPHAMIDE
     Indication: PRODUCT USED FOR UNKNOWN INDICATION
  3. EFFEXOR [Concomitant]
     Active Substance: VENLAFAXINE HYDROCHLORIDE
  4. TAXOTERE [Suspect]
     Active Substance: DOCETAXEL
     Dosage: UNK UNK, Q3W
     Route: 051
     Dates: start: 20100511, end: 20100511
  5. DOXORUBICIN [Concomitant]
     Active Substance: DOXORUBICIN
  6. INSULIN [Concomitant]
     Active Substance: INSULIN NOS

REACTIONS (6)
  - Alopecia [Recovering/Resolving]
  - Anxiety [Unknown]
  - Pain [Unknown]
  - Emotional distress [Unknown]
  - Psychological trauma [Unknown]
  - Impaired quality of life [Unknown]

NARRATIVE: CASE EVENT DATE: 20101111
